FAERS Safety Report 10234129 (Version 1)
Quarter: 2014Q2

REPORT INFORMATION
  Report Type: Spontaneous
  Country: US (occurrence: US)
  Receive Date: 20140612
  Receipt Date: 20140612
  Transmission Date: 20141212
  Serious: Yes (Hospitalization)
  Sender: FDA-Public Use
  Company Number: US-GLAXOSMITHKLINE-A1076632A

PATIENT
  Age: 46 Year
  Sex: Female
  Weight: 58.2 kg

DRUGS (7)
  1. ADVAIR HFA [Suspect]
     Indication: CHRONIC OBSTRUCTIVE PULMONARY DISEASE
     Route: 065
  2. ALBUTEROL [Suspect]
     Indication: WHEEZING
     Route: 055
  3. DIAZEPAM [Concomitant]
  4. FENTANYL [Concomitant]
  5. OXYCODONE [Concomitant]
  6. POLYETHYLENE GLYCOL [Concomitant]
  7. LYRICA [Concomitant]

REACTIONS (9)
  - Pneumonia [Unknown]
  - Chronic obstructive pulmonary disease [Unknown]
  - Dyspnoea [Unknown]
  - Cough [Unknown]
  - Weight decreased [Unknown]
  - Respiratory distress [Unknown]
  - Hypoxia [Unknown]
  - Wheezing [Unknown]
  - Pneumonia [Unknown]
